FAERS Safety Report 9973721 (Version 1)
Quarter: 2014Q1

REPORT INFORMATION
  Report Type: Spontaneous
  Country: IT (occurrence: IT)
  Receive Date: 20140306
  Receipt Date: 20140306
  Transmission Date: 20141002
  Serious: Yes (Hospitalization)
  Sender: FDA-Public Use
  Company Number: IT-SA-2014SA027545

PATIENT
  Age: 3 Year
  Sex: Male
  Weight: 12 kg

DRUGS (1)
  1. ENOXAPARIN SODIUM [Suspect]
     Indication: INTRACRANIAL VENOUS SINUS THROMBOSIS
     Dosage: DOSE: 1000 UI/KG
     Route: 058

REACTIONS (5)
  - International normalised ratio decreased [Unknown]
  - Overdose [Unknown]
  - Incorrect dose administered [Unknown]
  - Haemoglobin decreased [Unknown]
  - Haematocrit decreased [Unknown]
